FAERS Safety Report 22177763 (Version 1)
Quarter: 2023Q2

REPORT INFORMATION
  Report Type: Spontaneous
  Country: US (occurrence: US)
  Receive Date: 20230405
  Receipt Date: 20230405
  Transmission Date: 20230721
  Serious: Yes (Other)
  Sender: FDA-Public Use
  Company Number: US-PFIZER INC-202200185978

PATIENT
  Age: 80 Year
  Sex: Female

DRUGS (2)
  1. IBRANCE [Suspect]
     Active Substance: PALBOCICLIB
     Indication: Breast cancer female
     Dosage: 100 MG, CYCLIC (3X7)
  2. XGEVA [Suspect]
     Active Substance: DENOSUMAB

REACTIONS (2)
  - Osteoporosis [Not Recovered/Not Resolved]
  - Neoplasm progression [Unknown]
